FAERS Safety Report 9597747 (Version 1)
Quarter: 2013Q4

REPORT INFORMATION
  Report Type: Spontaneous
  Country: US (occurrence: US)
  Receive Date: 20131004
  Receipt Date: 20131004
  Transmission Date: 20140711
  Serious: No
  Sender: FDA-Public Use
  Company Number: US-AMGEN-USASP2013020364

PATIENT
  Age: 30 Year
  Sex: Female
  Weight: 105.22 kg

DRUGS (3)
  1. ENBREL [Suspect]
     Indication: PSORIASIS
     Dosage: 50 MG, QWK
     Route: 058
  2. ALLEGRA [Concomitant]
     Dosage: 180 MG, UNK
  3. LOESTRIN [Concomitant]
     Dosage: FE

REACTIONS (1)
  - Drug ineffective [Unknown]
